FAERS Safety Report 11864655 (Version 2)
Quarter: 2016Q1

REPORT INFORMATION
  Report Type: Spontaneous
  Country: US (occurrence: US)
  Receive Date: 20151223
  Receipt Date: 20160106
  Transmission Date: 20160526
  Serious: No
  Sender: FDA-Public Use
  Company Number: US-ELI_LILLY_AND_COMPANY-US201512002312

PATIENT
  Sex: Male

DRUGS (3)
  1. ANASTROZOLE. [Concomitant]
     Active Substance: ANASTROZOLE
     Dosage: UNK, UNKNOWN
     Route: 065
  2. HUMATROPE [Suspect]
     Active Substance: SOMATROPIN
     Indication: GROWTH HORMONE DEFICIENCY
     Dosage: 2.1 MG, QD
     Route: 065
     Dates: start: 201511
  3. HUMATROPE [Suspect]
     Active Substance: SOMATROPIN
     Dosage: 2.1 MG, QD
     Route: 065
     Dates: start: 201511

REACTIONS (1)
  - Underdose [Unknown]
